FAERS Safety Report 11578127 (Version 2)
Quarter: 2020Q3

REPORT INFORMATION
  Report Type: Report from Study
  Country: US (occurrence: US)
  Receive Date: 20150930
  Receipt Date: 20151020
  Transmission Date: 20201104
  Serious: Yes (Death, Life-Threatening, Disabling)
  Sender: FDA-Public Use
  Company Number: US-JNJFOC-20140410701

PATIENT
  Age: 76 Year
  Sex: Male

DRUGS (52)
  1. MORPHINE [Concomitant]
     Active Substance: MORPHINE
     Indication: ABDOMINAL PAIN
     Route: 065
     Dates: start: 20140411, end: 20140411
  2. OMEGA 3 FATTY ACID [Concomitant]
     Active Substance: OMEGA-3 FATTY ACIDS
     Indication: ROUTINE HEALTH MAINTENANCE
     Route: 065
     Dates: start: 20060601, end: 20121022
  3. MULTIVITAMINS [Concomitant]
     Active Substance: VITAMINS
     Indication: ROUTINE HEALTH MAINTENANCE
     Route: 065
     Dates: start: 20060601
  4. DOXYCYCLINE. [Concomitant]
     Active Substance: DOXYCYCLINE
     Indication: ARTHROPOD BITE
     Route: 065
     Dates: end: 20130927
  5. BACTRIM [Concomitant]
     Active Substance: SULFAMETHOXAZOLE\TRIMETHOPRIM
     Indication: POST PROCEDURAL INFECTION
     Route: 065
     Dates: start: 20121109, end: 20121111
  6. LIDOCAINE. [Concomitant]
     Active Substance: LIDOCAINE
     Indication: SQUAMOUS CELL CARCINOMA
     Route: 065
     Dates: end: 20121203
  7. CLOBETASOL [Concomitant]
     Active Substance: CLOBETASOL
     Indication: PSORIASIS
     Route: 065
     Dates: start: 2012, end: 20120807
  8. LIQUID NITROGEN [Concomitant]
     Active Substance: NITROGEN
     Indication: ACTINIC KERATOSIS
     Route: 065
     Dates: end: 20130603
  9. TOBRAMYCIN AND DEXAMETHASONE [Concomitant]
     Active Substance: DEXAMETHASONE\TOBRAMYCIN
     Indication: DRY EYE
     Route: 065
     Dates: start: 20130723, end: 20130910
  10. MUPIROCIN. [Concomitant]
     Active Substance: MUPIROCIN
     Indication: CARBUNCLE
     Route: 065
     Dates: start: 20130828, end: 20130917
  11. PROTONIX [Concomitant]
     Active Substance: PANTOPRAZOLE SODIUM
     Indication: GASTROINTESTINAL HAEMORRHAGE
     Route: 065
     Dates: start: 20140703, end: 20140703
  12. VERSED [Concomitant]
     Active Substance: MIDAZOLAM HYDROCHLORIDE
     Indication: GASTROINTESTINAL HAEMORRHAGE
     Route: 065
     Dates: end: 20140704
  13. DOXYCYCLINE. [Concomitant]
     Active Substance: DOXYCYCLINE
     Indication: ARTHROPOD BITE
     Route: 065
     Dates: start: 20120902, end: 20120905
  14. LIQUID NITROGEN [Concomitant]
     Active Substance: NITROGEN
     Indication: ACTINIC KERATOSIS
     Route: 065
     Dates: start: 20130603, end: 20130603
  15. VITAMIN C [Concomitant]
     Active Substance: ASCORBIC ACID
     Indication: NASOPHARYNGITIS
     Route: 065
     Dates: start: 20131022, end: 20131022
  16. USTEKINUMAB [Suspect]
     Active Substance: USTEKINUMAB
     Indication: PSORIASIS
     Route: 058
  17. EPINEPHRINE. [Concomitant]
     Active Substance: EPINEPHRINE
     Indication: BASAL CELL CARCINOMA
     Route: 065
     Dates: start: 20120918, end: 20121203
  18. HYDROCORTISONE. [Concomitant]
     Active Substance: HYDROCORTISONE
     Indication: PSORIASIS
     Route: 065
     Dates: start: 20120807
  19. AMLACTIN [Concomitant]
     Active Substance: AMMONIUM LACTATE
     Indication: PSORIATIC ARTHROPATHY
     Route: 065
     Dates: start: 20120831
  20. DOXYCYCLINE. [Concomitant]
     Active Substance: DOXYCYCLINE
     Indication: ARTHROPOD BITE
     Route: 065
     Dates: end: 20121022
  21. Z?PACK [Concomitant]
     Active Substance: AZITHROMYCIN DIHYDRATE
     Indication: UPPER RESPIRATORY TRACT INFECTION
     Route: 065
     Dates: start: 20140127, end: 20140129
  22. ROMAZICON [Concomitant]
     Active Substance: FLUMAZENIL
     Indication: GASTROINTESTINAL HAEMORRHAGE
     Route: 065
     Dates: start: 20140703, end: 20140703
  23. FENTANYL. [Concomitant]
     Active Substance: FENTANYL
     Indication: GASTROINTESTINAL HAEMORRHAGE
     Route: 065
     Dates: start: 20140703, end: 20140703
  24. FENTANYL. [Concomitant]
     Active Substance: FENTANYL
     Indication: GASTROINTESTINAL HAEMORRHAGE
     Route: 065
     Dates: end: 20140704
  25. DOXYCYCLINE. [Concomitant]
     Active Substance: DOXYCYCLINE
     Indication: CARBUNCLE
     Route: 065
     Dates: end: 20130927
  26. DOXYCYCLINE. [Concomitant]
     Active Substance: DOXYCYCLINE
     Indication: CARBUNCLE
     Route: 065
     Dates: start: 20120902, end: 20120905
  27. CLINDAMYCIN. [Concomitant]
     Active Substance: CLINDAMYCIN
     Indication: BASAL CELL CARCINOMA
     Route: 065
     Dates: end: 20121101
  28. CLINDAMYCIN. [Concomitant]
     Active Substance: CLINDAMYCIN
     Indication: BASAL CELL CARCINOMA
     Route: 065
     Dates: start: 20120918, end: 20121022
  29. TOBRAMYCIN AND DEXAMETHASONE [Concomitant]
     Active Substance: DEXAMETHASONE\TOBRAMYCIN
     Indication: DRY EYE
     Route: 065
     Dates: end: 20130917
  30. AMOXICILLIN. [Concomitant]
     Active Substance: AMOXICILLIN
     Indication: GASTROINTESTINAL HAEMORRHAGE
     Route: 065
     Dates: end: 20140707
  31. EPINEPHRINE. [Concomitant]
     Active Substance: EPINEPHRINE
     Indication: BASAL CELL CARCINOMA
     Route: 065
     Dates: end: 20121203
  32. PLAVIX [Concomitant]
     Active Substance: CLOPIDOGREL BISULFATE
     Indication: CORONARY ARTERY DISEASE
     Route: 065
     Dates: start: 19970601
  33. FLOMAX [Concomitant]
     Active Substance: TAMSULOSIN HYDROCHLORIDE
     Indication: URINARY RETENTION
     Route: 065
     Dates: start: 20140323, end: 20140323
  34. ROMAZICON [Concomitant]
     Active Substance: FLUMAZENIL
     Indication: GASTROINTESTINAL HAEMORRHAGE
     Route: 065
     Dates: end: 20140704
  35. ATENOLOL. [Concomitant]
     Active Substance: ATENOLOL
     Indication: CORONARY ARTERY DISEASE
     Route: 065
     Dates: start: 19970601
  36. DOXYCYCLINE. [Concomitant]
     Active Substance: DOXYCYCLINE
     Indication: CARBUNCLE
     Route: 065
     Dates: start: 20130828, end: 20130917
  37. BACTRIM [Concomitant]
     Active Substance: SULFAMETHOXAZOLE\TRIMETHOPRIM
     Indication: POST PROCEDURAL INFECTION
     Route: 065
     Dates: end: 20121120
  38. Z?PACK [Concomitant]
     Active Substance: AZITHROMYCIN DIHYDRATE
     Indication: UPPER RESPIRATORY TRACT INFECTION
     Route: 065
     Dates: end: 20140131
  39. USTEKINUMAB [Suspect]
     Active Substance: USTEKINUMAB
     Indication: PSORIASIS
     Route: 058
     Dates: start: 20120821
  40. ROCEPHIN [Suspect]
     Active Substance: CEFTRIAXONE SODIUM
     Indication: CYSTITIS
     Route: 065
     Dates: start: 20140407, end: 20140407
  41. MORPHINE [Concomitant]
     Active Substance: MORPHINE
     Indication: ABDOMINAL PAIN
     Route: 065
     Dates: end: 20140412
  42. ASPIRIN. [Concomitant]
     Active Substance: ASPIRIN
     Indication: CORONARY ARTERY DISEASE
     Route: 065
     Dates: start: 20060601
  43. LIDOCAINE. [Concomitant]
     Active Substance: LIDOCAINE
     Indication: SQUAMOUS CELL CARCINOMA
     Route: 065
     Dates: start: 20120918, end: 20121203
  44. TRIAMCINOLONE [Concomitant]
     Active Substance: TRIAMCINOLONE
     Indication: PSORIASIS
     Route: 065
     Dates: start: 2012, end: 20120807
  45. PROTONIX [Concomitant]
     Active Substance: PANTOPRAZOLE SODIUM
     Indication: GASTROINTESTINAL HAEMORRHAGE
     Route: 065
     Dates: end: 20140705
  46. AMOXICILLIN. [Concomitant]
     Active Substance: AMOXICILLIN
     Indication: GASTROINTESTINAL HAEMORRHAGE
     Route: 065
     Dates: start: 20140703, end: 20140703
  47. VERSED [Concomitant]
     Active Substance: MIDAZOLAM HYDROCHLORIDE
     Indication: GASTROINTESTINAL HAEMORRHAGE
     Route: 065
     Dates: start: 20140703, end: 20140703
  48. CETAPHIL UNSPECIFIED [Concomitant]
     Indication: PSORIASIS
     Route: 065
     Dates: start: 20120807
  49. DOXYCYCLINE. [Concomitant]
     Active Substance: DOXYCYCLINE
     Indication: CARBUNCLE
     Route: 065
     Dates: end: 20121022
  50. DOXYCYCLINE. [Concomitant]
     Active Substance: DOXYCYCLINE
     Indication: ARTHROPOD BITE
     Route: 065
     Dates: start: 20130828, end: 20130917
  51. VITAMIN C [Concomitant]
     Active Substance: ASCORBIC ACID
     Indication: NASOPHARYNGITIS
     Route: 065
     Dates: end: 20131105
  52. PROTONIX [Concomitant]
     Active Substance: PANTOPRAZOLE SODIUM
     Indication: GASTROINTESTINAL HAEMORRHAGE
     Route: 065
     Dates: start: 20140323, end: 20140401

REACTIONS (1)
  - Acute myeloid leukaemia [Fatal]

NARRATIVE: CASE EVENT DATE: 20140404
